FAERS Safety Report 18486586 (Version 1)
Quarter: 2020Q4

REPORT INFORMATION
  Report Type: Spontaneous
  Country: US (occurrence: US)
  Receive Date: 20201110
  Receipt Date: 20201110
  Transmission Date: 20210114
  Serious: No
  Sender: FDA-Public Use
  Company Number: US-PFIZER INC-2020442381

PATIENT
  Age: 46 Year
  Sex: Female
  Weight: 76.2 kg

DRUGS (1)
  1. DESVENLAFAXINE SUCCINATE MONOHYDRATE [Suspect]
     Active Substance: DESVENLAFAXINE SUCCINATE
     Indication: DEPRESSION
     Dosage: 100 MG ONCE A DAY IN THE MORNING
     Route: 048

REACTIONS (4)
  - Frustration tolerance decreased [Unknown]
  - Dizziness [Unknown]
  - Irritability [Unknown]
  - Anger [Unknown]
